FAERS Safety Report 11265061 (Version 1)
Quarter: 2015Q3

REPORT INFORMATION
  Report Type: Report from Study
  Country: BR (occurrence: BR)
  Receive Date: 20150713
  Receipt Date: 20150713
  Transmission Date: 20151125
  Serious: Yes (Death, Other)
  Sender: FDA-Public Use
  Company Number: PHHY2015BR081972

PATIENT
  Sex: Female
  Weight: 60 kg

DRUGS (1)
  1. EXELON PATCH [Suspect]
     Active Substance: RIVASTIGMINE
     Indication: MEMORY IMPAIRMENT
     Dosage: UNK
     Route: 062
     Dates: start: 201404

REACTIONS (1)
  - Hypertension [Fatal]
